FAERS Safety Report 7012304-7 (Version None)
Quarter: 2010Q3

REPORT INFORMATION
  Report Type: 
  Country: None (occurrence: None)
  Receive Date: 20100924
  Receipt Date: 20100915
  Transmission Date: 20110219
  Serious: Yes (Other)
  Sender: FDA-Public Use
  Company Number: US-SANOFI-AVENTIS-2010SA043018

PATIENT
  Age: 44 Year
  Sex: Female
  Weight: 63.5 kg

DRUGS (2)
  1. LOVENOX [Suspect]
     Route: 065
     Dates: start: 20100604, end: 20100604
  2. LOVENOX [Suspect]
     Route: 065
     Dates: start: 20100604, end: 20100604

REACTIONS (2)
  - INJURY ASSOCIATED WITH DEVICE [None]
  - PRODUCT QUALITY ISSUE [None]
